FAERS Safety Report 4752583-X (Version None)
Quarter: 2005Q3

REPORT INFORMATION
  Report Type: 
  Country: None (occurrence: None)
  Receive Date: 20050824
  Receipt Date: 20050804
  Transmission Date: 20060218
  Serious: Yes (Hospitalization)
  Sender: FDA-Public Use
  Company Number: USA0508104613

PATIENT
  Age: 48 Year
  Sex: Male

DRUGS (4)
  1. CIALIS [Suspect]
     Dosage: 20 MG
     Dates: start: 20050730, end: 20050730
  2. KALETRA [Concomitant]
  3. VIDEX [Concomitant]
  4. VIREAD [Concomitant]

REACTIONS (13)
  - ARTERIAL INJURY [None]
  - BLOOD PRESSURE SYSTOLIC DECREASED [None]
  - CARDIAC DISORDER [None]
  - CORONARY ARTERY OCCLUSION [None]
  - IATROGENIC INJURY [None]
  - MYOCARDIAL INFARCTION [None]
  - OESOPHAGEAL PAIN [None]
  - OVERDOSE [None]
  - POSTOPERATIVE INFECTION [None]
  - SELF-MEDICATION [None]
  - SYMPTOM MASKED [None]
  - VASCULAR PROCEDURE COMPLICATION [None]
  - VASCULAR PSEUDOANEURYSM [None]
